FAERS Safety Report 9832864 (Version 3)
Quarter: 2014Q1

REPORT INFORMATION
  Report Type: Report from Study
  Country: JP (occurrence: JP)
  Receive Date: 20140121
  Receipt Date: 20140210
  Transmission Date: 20141002
  Serious: Yes (Hospitalization)
  Sender: FDA-Public Use
  Company Number: JP-ABBVIE-13P-087-1137175-00

PATIENT
  Age: 36 Year
  Sex: Female
  Weight: 45.1 kg

DRUGS (5)
  1. HUMIRA [Suspect]
     Indication: BEHCET^S SYNDROME
     Route: 058
     Dates: start: 20130705, end: 20130705
  2. HUMIRA [Suspect]
     Dates: start: 20130719, end: 20130719
  3. HUMIRA [Suspect]
     Dates: start: 20130802, end: 20130802
  4. BIFIDOBACTERIUM [Concomitant]
     Indication: BEHCET^S SYNDROME
     Dosage: AFTER MEALS
  5. BIFIDOBACTERIUM [Concomitant]
     Route: 048

REACTIONS (4)
  - Hyperthermia [Recovering/Resolving]
  - Asthenia [Unknown]
  - Decreased appetite [Unknown]
  - Mental disorder [Not Recovered/Not Resolved]
